FAERS Safety Report 6180930-3 (Version None)
Quarter: 2009Q2

REPORT INFORMATION
  Report Type: 
  Country: None (occurrence: None)
  Receive Date: 20090504
  Receipt Date: 20090504
  Transmission Date: 20091009
  Serious: No
  Sender: FDA-Public Use
  Company Number: None

PATIENT
  Age: 43 Year
  Sex: Female
  Weight: 74.8435 kg

DRUGS (1)
  1. TRANSDERM SCOP [Suspect]
     Dosage: 1 PATCH EVERY THREE DAYS TRANSDERMAL
     Route: 062
     Dates: start: 20090422, end: 20090429

REACTIONS (5)
  - DISTURBANCE IN ATTENTION [None]
  - DIZZINESS [None]
  - IMPAIRED WORK ABILITY [None]
  - NAUSEA [None]
  - VISION BLURRED [None]
